FAERS Safety Report 14343490 (Version 1)
Quarter: 2018Q1

REPORT INFORMATION
  Report Type: Spontaneous
  Country: US (occurrence: US)
  Receive Date: 20180102
  Receipt Date: 20180102
  Transmission Date: 20180509
  Serious: Yes (Hospitalization)
  Sender: FDA-Public Use
  Company Number: US-SA-2017SA263883

PATIENT
  Age: 5 Year
  Sex: Male

DRUGS (1)
  1. LEUKINE [Suspect]
     Active Substance: SARGRAMOSTIM
     Indication: NEOPLASM MALIGNANT
     Route: 058

REACTIONS (2)
  - Hospitalisation [Unknown]
  - Product use issue [Unknown]
